FAERS Safety Report 6063360-4 (Version None)
Quarter: 2009Q1

REPORT INFORMATION
  Report Type: 
  Country: None (occurrence: None)
  Receive Date: 20090129
  Receipt Date: 20090116
  Transmission Date: 20090719
  Serious: Yes (Death, Hospitalization, Other)
  Sender: FDA-Public Use
  Company Number: 140594

PATIENT
  Age: 64 Year
  Sex: Female
  Weight: 99.4 kg

DRUGS (1)
  1. METHOTREXATE [Suspect]
     Indication: DRUG USE FOR UNKNOWN INDICATION
     Dosage: 2 G, X 1 OVER 24 HOURS, INTRAVENOUS
     Route: 042
     Dates: start: 20081001

REACTIONS (3)
  - DIALYSIS [None]
  - ORGAN FAILURE [None]
  - RENAL FAILURE ACUTE [None]
